FAERS Safety Report 11194849 (Version 1)
Quarter: 2015Q2

REPORT INFORMATION
  Report Type: Spontaneous
  Country: US (occurrence: US)
  Receive Date: 20150617
  Receipt Date: 20150617
  Transmission Date: 20150821
  Serious: Yes (Other)
  Sender: FDA-Public Use
  Company Number: US-JNJFOC-20150608596

PATIENT
  Age: 14 Year
  Sex: Male
  Weight: 45.36 kg

DRUGS (5)
  1. HURT FREE WRAP [Suspect]
     Active Substance: UNSPECIFIED INGREDIENT
     Indication: PRODUCT USED FOR UNKNOWN INDICATION
     Dosage: DIME SIZE THEN A QUARTER SIZE
     Route: 065
     Dates: start: 20150609
  2. DERMOPLAST /00172701/ [Suspect]
     Active Substance: BENZETHONIUM\BENZOCAINE\MENTHOL
     Indication: SKIN ABRASION
     Dosage: TWO TIMES THAT DAY
     Route: 065
     Dates: start: 20150609
  3. VITAMIN D [Concomitant]
     Active Substance: CHOLECALCIFEROL
     Indication: VITAMIN D DEFICIENCY
     Dosage: 3 MONTHS
     Route: 065
  4. LETROZOLE. [Concomitant]
     Active Substance: LETROZOLE
     Indication: DELAYED PUBERTY
     Dosage: 2 YEARS
     Route: 065
  5. NEOSPORIN PLUS PAIN RELIEF MAXIMUM STRENGTH FIRST AID ANTIBIOTIC PAIN RELIEVING [Suspect]
     Active Substance: BACITRACIN ZINC\NEOMYCIN SULFATE\POLYMYXIN B SULFATE\PRAMOXINE HYDROCHLORIDE
     Indication: SKIN ABRASION
     Dosage: DIME SIZE THEN A QUARTER SIZE, TWO TIMES THAT DAY
     Route: 061
     Dates: start: 20150609

REACTIONS (7)
  - Hypoaesthesia [Recovered/Resolved]
  - Hypersensitivity [Recovered/Resolved]
  - Erythema [Recovered/Resolved]
  - Pruritus [Recovered/Resolved]
  - Dizziness [Recovered/Resolved]
  - Vomiting [Recovered/Resolved]
  - Blood pressure decreased [Unknown]

NARRATIVE: CASE EVENT DATE: 20150609
